FAERS Safety Report 6346695-7 (Version None)
Quarter: 2009Q3

REPORT INFORMATION
  Report Type: 
  Country: None (occurrence: None)
  Receive Date: 20090904
  Receipt Date: 20090825
  Transmission Date: 20100115
  Serious: Yes (Other)
  Sender: FDA-Public Use
  Company Number: 220001M09SWE

PATIENT
  Sex: Female

DRUGS (2)
  1. PLACEBO (PLACEBO) [Suspect]
     Indication: DRUG USE FOR UNKNOWN INDICATION
  2. CORTISONE (CORTISONE) [Concomitant]

REACTIONS (2)
  - ANAPHYLACTIC REACTION [None]
  - FEELING ABNORMAL [None]
